FAERS Safety Report 7744015-4 (Version None)
Quarter: 2011Q3

REPORT INFORMATION
  Report Type: 
  Country: None (occurrence: None)
  Receive Date: 20110825
  Receipt Date: 20110817
  Transmission Date: 20111222
  Serious: Yes (Hospitalization)
  Sender: FDA-Public Use
  Company Number: 2011SP039296

PATIENT
  Age: 50 Year
  Sex: Male

DRUGS (5)
  1. MYCOPHENOLATE MOFETIL [Concomitant]
  2. RIBAVIRIN [Suspect]
     Indication: HEPATIC CIRRHOSIS
     Dates: start: 20080801
  3. TACROLIMUS [Concomitant]
  4. PEGINTERFERON ALFA-2B [Suspect]
     Indication: HEPATIC CIRRHOSIS
     Dates: start: 20080801
  5. STEROID [Concomitant]

REACTIONS (3)
  - PNEUMONIA [None]
  - PYREXIA [None]
  - BRONCHOPULMONARY ASPERGILLOSIS [None]
